FAERS Safety Report 6150823-6 (Version None)
Quarter: 2009Q2

REPORT INFORMATION
  Report Type: 
  Country: None (occurrence: None)
  Receive Date: 20090409
  Receipt Date: 20090406
  Transmission Date: 20091009
  Serious: Yes (Hospitalization, Other)
  Sender: FDA-Public Use
  Company Number: ES-AMGEN-UK282530

PATIENT
  Sex: Male

DRUGS (2)
  1. PANITUMUMAB [Suspect]
     Indication: COLORECTAL CANCER
     Route: 042
     Dates: start: 20080422
  2. IRINOTECAN HCL [Suspect]
     Route: 042
     Dates: start: 20080422

REACTIONS (4)
  - DIARRHOEA [None]
  - FEBRILE NEUTROPENIA [None]
  - MUCOSAL INFLAMMATION [None]
  - THROMBOCYTOPENIA [None]
